FAERS Safety Report 14270121 (Version 1)
Quarter: 2017Q4

REPORT INFORMATION
  Report Type: Report from Study
  Country: JP (occurrence: JP)
  Receive Date: 20171211
  Receipt Date: 20171211
  Transmission Date: 20180321
  Serious: Yes (Hospitalization, Other)
  Sender: FDA-Public Use
  Company Number: JP-OTSUKA-JP-2013-10268

PATIENT
  Age: 44 Year
  Sex: Male
  Weight: 83 kg

DRUGS (10)
  1. RISPERIDONE. [Suspect]
     Active Substance: RISPERIDONE
     Indication: BIPOLAR DISORDER
     Dosage: 3 MG, UNK
     Route: 048
     Dates: start: 20121230, end: 20130114
  2. SENNOSIDE [Concomitant]
     Active Substance: SENNOSIDES
     Indication: PROPHYLAXIS
     Dosage: 2 DF, QD
     Route: 048
     Dates: start: 20130103, end: 20130117
  3. SENNA [Concomitant]
     Active Substance: SENNA LEAF\SENNOSIDES\SENNOSIDES A AND B
     Dosage: UNK
     Dates: start: 20130103, end: 20130117
  4. LEVOTOMIN [Suspect]
     Active Substance: LEVOMEPROMAZINE
     Indication: BIPOLAR DISORDER
     Dosage: 5 MG, QD
     Route: 048
     Dates: start: 20130104, end: 20130113
  5. ARIPIPRAZOLE. [Suspect]
     Active Substance: ARIPIPRAZOLE
     Indication: BIPOLAR DISORDER
     Dosage: 24 MG, QD
     Route: 048
     Dates: start: 20130104, end: 20130118
  6. OPC-14597IMD [Suspect]
     Active Substance: ARIPIPRAZOLE
     Indication: BIPOLAR DISORDER
     Route: 048
     Dates: start: 20130104, end: 20130118
  7. LIMAS [Suspect]
     Active Substance: LITHIUM CARBONATE
     Indication: BIPOLAR DISORDER
     Dosage: 200 MG, QD
     Route: 048
     Dates: start: 20120604, end: 20130121
  8. RISPERIDONE. [Suspect]
     Active Substance: RISPERIDONE
     Indication: BIPOLAR DISORDER
     Dosage: 3 MG, QD
     Route: 048
     Dates: start: 20121230, end: 20130114
  9. LEVOMEPROMAZINE [Suspect]
     Active Substance: LEVOMEPROMAZINE
     Indication: BIPOLAR DISORDER
     Dosage: 5 MG, UNK
     Route: 048
     Dates: start: 20130104, end: 20130113
  10. ARIPIPRAZOLE. [Suspect]
     Active Substance: ARIPIPRAZOLE
     Indication: BIPOLAR DISORDER
     Dosage: 24 MG, UNK
     Route: 048
     Dates: start: 20130104, end: 20130118

REACTIONS (1)
  - Neuroleptic malignant syndrome [Recovered/Resolved]

NARRATIVE: CASE EVENT DATE: 20130114
